FAERS Safety Report 18202166 (Version 15)
Quarter: 2025Q3

REPORT INFORMATION
  Report Type: Spontaneous
  Country: US (occurrence: US)
  Receive Date: 20200827
  Receipt Date: 20250926
  Transmission Date: 20251020
  Serious: Yes (Other)
  Sender: PFIZER
  Company Number: US-PFIZER INC-2020328523

PATIENT
  Age: 58 Year
  Sex: Female

DRUGS (15)
  1. IBRANCE [Suspect]
     Active Substance: PALBOCICLIB
     Indication: Breast cancer female
     Dates: start: 201706
  2. IBRANCE [Suspect]
     Active Substance: PALBOCICLIB
     Dates: start: 20200101, end: 2020
  3. IBRANCE [Suspect]
     Active Substance: PALBOCICLIB
     Dates: start: 20200824, end: 2020
  4. IBRANCE [Suspect]
     Active Substance: PALBOCICLIB
     Dates: start: 20200911, end: 2020
  5. IBRANCE [Suspect]
     Active Substance: PALBOCICLIB
  6. IBRANCE [Suspect]
     Active Substance: PALBOCICLIB
     Dates: start: 20201106
  7. IBRANCE [Suspect]
     Active Substance: PALBOCICLIB
     Dates: start: 20210301
  8. IBRANCE [Suspect]
     Active Substance: PALBOCICLIB
     Dates: start: 20220207
  9. IBRANCE [Suspect]
     Active Substance: PALBOCICLIB
     Route: 048
     Dates: start: 20231005
  10. IBRANCE [Suspect]
     Active Substance: PALBOCICLIB
     Route: 048
  11. FOSAMAX [Concomitant]
     Active Substance: ALENDRONATE SODIUM
  12. LETROZOLE [Concomitant]
     Active Substance: LETROZOLE
  13. LORATADINE [Concomitant]
     Active Substance: LORATADINE
  14. VITAMIN B COMPLEX [Concomitant]
     Active Substance: CYANOCOBALAMIN\DEXPANTHENOL\NIACINAMIDE\PYRIDOXINE HYDROCHLORIDE\RIBOFLAVIN 5^-PHOSPHATE SODIUM\THIA
  15. PROBIOTICS NOS [Concomitant]
     Active Substance: PROBIOTICS NOS

REACTIONS (11)
  - Neutropenia [Unknown]
  - Full blood count abnormal [Recovered/Resolved]
  - Nausea [Unknown]
  - Hot flush [Unknown]
  - Arthralgia [Unknown]
  - Brain fog [Unknown]
  - Fatigue [Unknown]
  - Dry skin [Unknown]
  - Muscle spasms [Unknown]
  - Off label use [Unknown]
  - Product dose omission issue [Unknown]
